FAERS Safety Report 15319410 (Version 1)
Quarter: 2018Q3

REPORT INFORMATION
  Report Type: Spontaneous
  Country: FR (occurrence: FR)
  Receive Date: 20180827
  Receipt Date: 20180827
  Transmission Date: 20181010
  Serious: Yes (Disabling, Other)
  Sender: FDA-Public Use
  Company Number: FR-AUROBINDO-AUR-APL-2018-043088

PATIENT
  Age: 63 Year
  Sex: Male

DRUGS (5)
  1. MABTHERA [Suspect]
     Active Substance: RITUXIMAB
     Indication: LYMPHOMA
     Dosage: CYCLE (1) ; CYCLICAL
     Route: 042
     Dates: start: 20180212, end: 20180529
  2. CYCLOPHOSPHAMIDE. [Suspect]
     Active Substance: CYCLOPHOSPHAMIDE
     Indication: LYMPHOMA
     Dosage: (1)CYCLICAL
     Route: 042
     Dates: start: 20180212, end: 20180529
  3. PREDNISONE. [Suspect]
     Active Substance: PREDNISONE
     Indication: LYMPHOMA
     Dosage: J1 ? J5 ? CHAQUE CYCLE ()
     Route: 048
     Dates: start: 20180212, end: 20180529
  4. DOXORUBICIN [Suspect]
     Active Substance: DOXORUBICIN
     Indication: LYMPHOMA
     Dosage: UNK UNK, CYCLICAL
     Route: 042
     Dates: start: 20180212, end: 20180529
  5. ONCOVIN [Suspect]
     Active Substance: VINCRISTINE SULFATE
     Indication: LYMPHOMA
     Dosage: 2 MILLIGRAM, CYCLICAL
     Route: 042
     Dates: start: 20180212, end: 20180529

REACTIONS (1)
  - Neuropathy peripheral [Not Recovered/Not Resolved]

NARRATIVE: CASE EVENT DATE: 20180416
